FAERS Safety Report 23619539 (Version 1)
Quarter: 2024Q1

REPORT INFORMATION
  Report Type: Spontaneous
  Country: NL (occurrence: NL)
  Receive Date: 20240312
  Receipt Date: 20240312
  Transmission Date: 20240410
  Serious: Yes (Other)
  Sender: FDA-Public Use
  Company Number: NL-LRB-00944255

PATIENT
  Age: 81 Year
  Sex: Female
  Weight: 68 kg

DRUGS (2)
  1. AMIODARONE HYDROCHLORIDE [Interacting]
     Active Substance: AMIODARONE HYDROCHLORIDE
     Indication: Atrial fibrillation
     Dosage: 200 MILLIGRAM, ONCE A DAY (1 PIECE ONCE PER DAY)
     Route: 065
     Dates: start: 20231215
  2. DABIGATRAN [Interacting]
     Active Substance: DABIGATRAN
     Indication: Atrial fibrillation
     Dosage: 150 MILLIGRAM, TWO TIMES A DAY
     Route: 065
     Dates: start: 20220926

REACTIONS (4)
  - Traumatic haematoma [Unknown]
  - Haemorrhage subcutaneous [Not Recovered/Not Resolved]
  - Epistaxis [Unknown]
  - Drug interaction [Not Recovered/Not Resolved]
